FAERS Safety Report 8047441-1 (Version None)
Quarter: 2012Q1

REPORT INFORMATION
  Report Type: 
  Country: None (occurrence: None)
  Receive Date: 20120116
  Receipt Date: 20120106
  Transmission Date: 20120608
  Serious: Yes (Hospitalization)
  Sender: FDA-Public Use
  Company Number: US-JNJFOC-20111209559

PATIENT
  Sex: Male
  Weight: 65 kg

DRUGS (8)
  1. FOLIC ACID [Concomitant]
  2. PREVACID [Concomitant]
  3. UNKNOWN MEDICATION [Concomitant]
     Indication: SINUSITIS
     Dates: start: 20111201
  4. METHOTREXATE [Suspect]
     Indication: INFLAMMATORY BOWEL DISEASE
  5. REMICADE [Suspect]
     Indication: INFLAMMATORY BOWEL DISEASE
     Route: 042
     Dates: start: 20090305
  6. HUMIRA [Suspect]
     Indication: INFLAMMATORY BOWEL DISEASE
     Dates: start: 20110303
  7. MESALAMINE [Concomitant]
     Route: 048
  8. CEFDINIR [Suspect]
     Indication: PRODUCT USED FOR UNKNOWN INDICATION

REACTIONS (1)
  - GASTROENTERITIS [None]
